FAERS Safety Report 25499251 (Version 6)
Quarter: 2025Q4

REPORT INFORMATION
  Report Type: Report from Study
  Country: US (occurrence: US)
  Receive Date: 20250701
  Receipt Date: 20251231
  Transmission Date: 20260118
  Serious: No
  Sender: AVERITAS
  Company Number: US-GRUNENTHAL-2025-108802

PATIENT
  Age: 47 Year
  Sex: Female

DRUGS (3)
  1. QUTENZA [Suspect]
     Active Substance: CAPSAICIN
     Indication: Diabetic neuropathy
     Dosage: UNK, ONCE
     Route: 061
     Dates: start: 20250609, end: 20250609
  2. GABAPENTIN [Concomitant]
     Active Substance: GABAPENTIN
     Indication: Pain
     Dosage: UNK
     Route: 065
     Dates: start: 20250609, end: 20250609
  3. UNSPECIFIED INGREDIENT [Concomitant]
     Active Substance: UNSPECIFIED INGREDIENT
     Indication: Restless legs syndrome
     Dosage: UNK
     Route: 065

REACTIONS (12)
  - Burning sensation [Recovered/Resolved]
  - Electric shock sensation [Recovered/Resolved]
  - Accidental exposure to product [Recovered/Resolved]
  - Skin burning sensation [Recovered/Resolved]
  - Feeling abnormal [Unknown]
  - Pain [Unknown]
  - Application site pain [Unknown]
  - Feeling hot [Unknown]
  - Hypoaesthesia [Unknown]
  - Pain in extremity [Recovered/Resolved]
  - COVID-19 [Recovered/Resolved]
  - Pain in extremity [Not Recovered/Not Resolved]

NARRATIVE: CASE EVENT DATE: 20250101
